FAERS Safety Report 8251010-8 (Version None)
Quarter: 2012Q2

REPORT INFORMATION
  Report Type: 
  Country: None (occurrence: None)
  Receive Date: 20120402
  Receipt Date: 20120329
  Transmission Date: 20120825
  Serious: No
  Sender: FDA-Public Use
  Company Number: US-PFIZER INC-2012081216

PATIENT
  Sex: Female
  Weight: 61 kg

DRUGS (3)
  1. LYRICA [Suspect]
     Indication: BACK PAIN
     Dosage: 150 MG, 2X/DAY
     Route: 048
     Dates: end: 20120328
  2. LYRICA [Suspect]
     Indication: FIBROMYALGIA
  3. PROPRANOLOL [Concomitant]
     Indication: BLOOD PRESSURE ABNORMAL
     Dosage: 10 MG, 2X/DAY

REACTIONS (1)
  - NASOPHARYNGITIS [None]
